FAERS Safety Report 11870679 (Version 2)
Quarter: 2016Q1

REPORT INFORMATION
  Report Type: Spontaneous
  Country: US (occurrence: US)
  Receive Date: 20151228
  Receipt Date: 20160116
  Transmission Date: 20160526
  Serious: Yes (Hospitalization)
  Sender: FDA-Public Use
  Company Number: US-AUROBINDO-AUR-APL-2015-07993

PATIENT
  Age: 39 Year
  Sex: Male

DRUGS (8)
  1. OXYCODONE [Suspect]
     Active Substance: OXYCODONE
     Indication: BACK PAIN
     Dosage: EXTENDED-RELEASE 60, MG EVERY 8 HOURS
     Route: 065
  2. OXYCODONE TABLET (OXYCODONE) TABLET [Interacting]
     Active Substance: OXYCODONE
     Dosage: IR 20MG EVERY 2 HOURS
     Route: 065
  3. OXYCODONE TABLET (OXYCODONE) TABLET [Interacting]
     Active Substance: OXYCODONE
     Indication: BACK PAIN
     Dosage: IMMEDIATE-RELEASE OXYCODONE 15MG EVERY 4 HOURS
     Route: 065
  4. OXYCODONE TABLET (OXYCODONE) TABLET [Interacting]
     Active Substance: OXYCODONE
     Dosage: IR 40MG EVERY 2 HOURS
     Route: 065
  5. FOSPHENYTOIN [Interacting]
     Active Substance: FOSPHENYTOIN\FOSPHENYTOIN SODIUM
     Indication: PRODUCT USED FOR UNKNOWN INDICATION
     Dosage: 300 MG, DAILY
     Route: 042
  6. OXYCODONE [Suspect]
     Active Substance: OXYCODONE
     Dosage: ER 100MG EVERY 8 HOURSUNK
  7. OXYCODONE [Suspect]
     Active Substance: OXYCODONE
     Dosage: ER 120MG EVERY 8 HOURSUNK
     Route: 065
  8. LEVETIRACETAM. [Concomitant]
     Active Substance: LEVETIRACETAM
     Indication: PROPHYLAXIS
     Dosage: 500 MG, TWO TIMES A DAY
     Route: 048

REACTIONS (7)
  - Pain in extremity [Recovering/Resolving]
  - Back pain [Recovering/Resolving]
  - Headache [Recovering/Resolving]
  - Pain [Recovering/Resolving]
  - Drug interaction [Recovering/Resolving]
  - Oral pain [Recovering/Resolving]
  - Therapeutic response decreased [Recovering/Resolving]
